FAERS Safety Report 25260814 (Version 2)
Quarter: 2025Q2

REPORT INFORMATION
  Report Type: Spontaneous
  Country: CN (occurrence: CN)
  Receive Date: 20250501
  Receipt Date: 20250510
  Transmission Date: 20250717
  Serious: No
  Sender: NOVO NORDISK
  Company Number: CN-NOVOPROD-1409838

PATIENT
  Age: 62 Year
  Sex: Male
  Weight: 70 kg

DRUGS (3)
  1. NOVOLIN R [Suspect]
     Active Substance: INSULIN HUMAN
     Indication: Type 2 diabetes mellitus
     Dosage: 38 IU, QD(14 UNITS BEFORE BREAKFAST, AND 12 UNITS BEFORE BOTH LUNCH AND DINNER)
  2. INSULIN GLARGINE [Concomitant]
     Active Substance: INSULIN GLARGINE
     Indication: Product used for unknown indication
     Dosage: 28 IU, QD
  3. ASPIRIN [Concomitant]
     Active Substance: ASPIRIN
     Indication: Hypertension

REACTIONS (1)
  - Gout [Recovering/Resolving]
